FAERS Safety Report 4326285-8 (Version None)
Quarter: 2004Q1

REPORT INFORMATION
  Report Type: 
  Country: None (occurrence: None)
  Receive Date: 20040324
  Receipt Date: 20040311
  Transmission Date: 20041129
  Serious: No
  Sender: FDA-Public Use
  Company Number: 2004-113791-NL

PATIENT
  Age: 44 Year
  Sex: Male

DRUGS (7)
  1. MIRTAZAPINE [Suspect]
     Dosage: 15 MG
     Dates: start: 20031230, end: 20040102
  2. DISULPIRAM [Suspect]
     Dosage: 125 MG/250MG
     Dates: end: 20040105
  3. DISULPIRAM [Suspect]
     Dosage: 125 MG/250MG
     Dates: start: 20031125
  4. VITAMIN B COMPLEX CAP [Concomitant]
  5. CHLORDIAZEPOXIDUM [Concomitant]
  6. THIAMINE HCL [Concomitant]
  7. SOTALOL HYDROCHLORIDE [Concomitant]

REACTIONS (1)
  - HEPATITIS [None]
